FAERS Safety Report 9985634 (Version 1)
Quarter: 2014Q1

REPORT INFORMATION
  Report Type: Report from Study
  Country: US (occurrence: US)
  Receive Date: 20140307
  Receipt Date: 20140307
  Transmission Date: 20141002
  Serious: Yes (Hospitalization)
  Sender: FDA-Public Use
  Company Number: US-ABBVIE-14P-163-1207604-00

PATIENT
  Age: 22 Year
  Sex: Male
  Weight: 54.48 kg

DRUGS (2)
  1. HUMIRA [Suspect]
     Indication: CROHN^S DISEASE
     Dates: start: 200806, end: 201401
  2. METHOTREXATE [Concomitant]
     Indication: CROHN^S DISEASE
     Dates: start: 201306

REACTIONS (14)
  - Renal function test abnormal [Not Recovered/Not Resolved]
  - Vomiting [Recovered/Resolved]
  - Nausea [Recovered/Resolved]
  - Abdominal pain [Recovered/Resolved]
  - Diarrhoea [Recovered/Resolved]
  - Dehydration [Recovered/Resolved]
  - Anaemia [Recovered/Resolved]
  - Nephropathy [Not Recovered/Not Resolved]
  - Hypovitaminosis [Recovered/Resolved]
  - Mineral deficiency [Recovered/Resolved]
  - Blood potassium decreased [Recovered/Resolved]
  - Vitamin D decreased [Recovered/Resolved]
  - Renal impairment [Not Recovered/Not Resolved]
  - Kidney fibrosis [Not Recovered/Not Resolved]
